FAERS Safety Report 9710721 (Version 1)
Quarter: 2013Q4

REPORT INFORMATION
  Report Type: Spontaneous
  Country: US (occurrence: US)
  Receive Date: 20131126
  Receipt Date: 20131126
  Transmission Date: 20140711
  Serious: No
  Sender: FDA-Public Use
  Company Number: US-B.I. PHARMACEUTICALS,INC./RIDGEFIELD-2013-BI-37397BP

PATIENT
  Age: 58 Year
  Sex: Female

DRUGS (3)
  1. COMBIVENT [Suspect]
     Indication: ASTHMA
     Dosage: DOSE PER APPLICATION: 20 MCG / 100 MCG;
     Route: 055
     Dates: start: 201307
  2. DALIRESP [Concomitant]
     Indication: ASTHMA
     Dosage: 500 MCG
     Route: 048
  3. SYMBICORT [Concomitant]
     Indication: ASTHMA
     Dosage: DOSE PER APPLICATION: 1 INHALATION; DAILY DOSE: 1 INHALATION
     Route: 055
     Dates: start: 201309

REACTIONS (1)
  - Off label use [Not Recovered/Not Resolved]
